FAERS Safety Report 12726768 (Version 2)
Quarter: 2016Q4

REPORT INFORMATION
  Report Type: Spontaneous
  Country: US (occurrence: US)
  Receive Date: 20160908
  Receipt Date: 20161017
  Transmission Date: 20170207
  Serious: Yes (Other)
  Sender: FDA-Public Use
  Company Number: US-TAKEDA-2016TUS015605

PATIENT
  Age: 58 Year
  Sex: Female
  Weight: 59.86 kg

DRUGS (3)
  1. DICYCLOMINE                        /00068601/ [Suspect]
     Active Substance: DICYCLOMINE HYDROCHLORIDE
     Indication: CROHN^S DISEASE
  2. ENTYVIO [Suspect]
     Active Substance: VEDOLIZUMAB
     Indication: CROHN^S DISEASE
     Dosage: 300 MG, UNK
     Route: 042
     Dates: start: 20160520, end: 20160825
  3. DICYCLOMINE                        /00068601/ [Suspect]
     Active Substance: DICYCLOMINE HYDROCHLORIDE
     Indication: ABDOMINAL PAIN
     Dosage: 10 MG, QID
     Route: 065
     Dates: start: 20160810, end: 20160816

REACTIONS (10)
  - Muscular weakness [Recovered/Resolved]
  - Crohn^s disease [Recovered/Resolved]
  - Weight decreased [Unknown]
  - Confusional state [Recovered/Resolved]
  - Dizziness [Recovered/Resolved]
  - Feeling abnormal [Recovered/Resolved]
  - Vomiting [Recovered/Resolved]
  - Heart rate increased [Recovered/Resolved]
  - Hypertension [Unknown]
  - Speech disorder [Unknown]

NARRATIVE: CASE EVENT DATE: 20160520
